FAERS Safety Report 8394960-4 (Version None)
Quarter: 2012Q2

REPORT INFORMATION
  Report Type: 
  Country: None (occurrence: None)
  Receive Date: 20120530
  Receipt Date: 20120116
  Transmission Date: 20120825
  Serious: No
  Sender: FDA-Public Use
  Company Number: US-GLAXOSMITHKLINE-A0961846A

PATIENT
  Age: 77 Year
  Sex: Female
  Weight: 76 kg

DRUGS (25)
  1. LOVAZA [Concomitant]
     Dosage: 2G TWICE PER DAY
  2. WARFARIN SODIUM [Concomitant]
     Dosage: 2.5MG AS DIRECTED
  3. ACTONEL [Concomitant]
     Dosage: 150MG MONTHLY
  4. GLUCOSAMINE [Concomitant]
     Dosage: 1500MG PER DAY
  5. REVATIO [Concomitant]
     Dosage: 40MG THREE TIMES PER DAY
  6. LETAIRIS [Concomitant]
     Dosage: 5MG PER DAY
  7. AMLODIPINE BESYLATE [Concomitant]
     Dosage: 5MG PER DAY
  8. CRESTOR [Concomitant]
     Dosage: 20MG PER DAY
  9. POTASSIUM CHLORIDE [Concomitant]
     Dosage: 10MEQ PER DAY
  10. TYLENOL [Concomitant]
     Dosage: 500MG AS REQUIRED
  11. VITAMIN D [Concomitant]
     Dosage: 50000UNIT MONTHLY
  12. OMEPRAZOLE [Concomitant]
     Dosage: 20MG TWICE PER DAY
  13. ACETYLCYSTEINE [Concomitant]
  14. LASIX [Concomitant]
     Dosage: 40MG PER DAY
  15. AVAPRO [Concomitant]
     Dosage: 75MG PER DAY
  16. GABAPENTIN [Concomitant]
     Dosage: 1200MG THREE TIMES PER DAY
  17. FLOLAN [Suspect]
     Indication: PULMONARY ARTERIAL HYPERTENSION
     Dosage: 4NGKM SEE DOSAGE TEXT
     Route: 042
     Dates: start: 20120113
  18. FUROSEMIDE [Concomitant]
     Dosage: 20MG AS REQUIRED
  19. IMODIUM [Concomitant]
     Dosage: 2MG AS REQUIRED
  20. MULTI-VITAMIN [Concomitant]
  21. MAGNESIUM [Concomitant]
     Dosage: 200MG AS DIRECTED
  22. OXYGEN [Concomitant]
  23. HYDROCHLOROTHIAZIDE [Concomitant]
     Dosage: 12.5MG AS REQUIRED
  24. CALCIUM [Concomitant]
  25. CALCIUM CARBONATE [Concomitant]
     Dosage: 600MG TWICE PER DAY

REACTIONS (3)
  - DIZZINESS [None]
  - DIARRHOEA [None]
  - PAIN IN JAW [None]
